FAERS Safety Report 24457272 (Version 1)
Quarter: 2024Q4

REPORT INFORMATION
  Report Type: Spontaneous
  Country: NL (occurrence: US)
  Receive Date: 20241018
  Receipt Date: 20241018
  Transmission Date: 20250115
  Serious: Yes (Hospitalization, Other)
  Sender: BRISTOL-MYERS SQUIBB COMPANY
  Company Number: NL-BRISTOL-MYERS SQUIBB COMPANY-2024-162269

PATIENT
  Sex: Female

DRUGS (2)
  1. REBLOZYL [Suspect]
     Active Substance: LUSPATERCEPT-AAMT
     Indication: Myelodysplastic syndrome
     Dosage: DOSE: 2 INJECTIONS
     Dates: start: 202206, end: 20240820
  2. ARANESP [Suspect]
     Active Substance: DARBEPOETIN ALFA
     Indication: Blood iron increased
     Dates: start: 202209

REACTIONS (2)
  - Oxygen saturation decreased [Unknown]
  - Ventilation perfusion mismatch [Unknown]

NARRATIVE: CASE EVENT DATE: 20240101
